FAERS Safety Report 6659686-3 (Version None)
Quarter: 2010Q1

REPORT INFORMATION
  Report Type: 
  Country: None (occurrence: None)
  Receive Date: 20100330
  Receipt Date: 20100318
  Transmission Date: 20100710
  Serious: Yes (Hospitalization, Other)
  Sender: FDA-Public Use
  Company Number: US-PFIZER INC-2009180093

PATIENT
  Sex: Female
  Weight: 79 kg

DRUGS (9)
  1. CHANTIX [Suspect]
     Indication: SMOKING CESSATION THERAPY
     Dosage: 0.5 MG, 1X/DAY
     Dates: start: 20090307
  2. CHANTIX [Suspect]
     Dosage: UNK
     Dates: end: 20090601
  3. XANAX [Suspect]
     Indication: NERVOUSNESS
  4. DILAUDID [Suspect]
     Indication: PAIN
     Dosage: UNK
  5. PERCOCET [Suspect]
     Indication: PAIN
     Dosage: UNK
  6. ROBAXIN [Concomitant]
     Dosage: UNK
  7. LOVASTATIN [Concomitant]
     Dosage: UNK
  8. PREMARIN [Concomitant]
     Dosage: UNK
  9. TIZANIDINE HCL [Concomitant]
     Dosage: 2 MG, UNK

REACTIONS (9)
  - CARDIAC FAILURE [None]
  - CORONARY ARTERIAL STENT INSERTION [None]
  - DYSARTHRIA [None]
  - HALLUCINATION [None]
  - MENTAL DISORDER [None]
  - PNEUMONIA [None]
  - RENAL FAILURE [None]
  - SOMNOLENCE [None]
  - THINKING ABNORMAL [None]
